FAERS Safety Report 10249284 (Version 2)
Quarter: 2014Q2

REPORT INFORMATION
  Report Type: Spontaneous
  Country: ES (occurrence: ES)
  Receive Date: 20140620
  Receipt Date: 20140620
  Transmission Date: 20141212
  Serious: Yes (Life-Threatening)
  Sender: FDA-Public Use
  Company Number: PHBS2005ES16970

PATIENT
  Age: 66 Year
  Sex: Female

DRUGS (3)
  1. TIMOLOL [Suspect]
     Indication: INTRAOCULAR PRESSURE INCREASED
     Dosage: 1 DRP/DAY
     Route: 047
  2. LORAZEPAM [Concomitant]
     Dosage: 1 MG, ONCE/SINGLE
     Route: 048
  3. BUPIVACAINE W/FENTANYL [Concomitant]
     Dosage: 6 ML/HR
     Route: 008

REACTIONS (4)
  - Atrioventricular block complete [Recovered/Resolved]
  - Cardiac arrest [Recovered/Resolved]
  - Loss of consciousness [Recovered/Resolved]
  - Heart rate decreased [Recovered/Resolved]
